FAERS Safety Report 5411641-7 (Version None)
Quarter: 2007Q3

REPORT INFORMATION
  Report Type: 
  Country: None (occurrence: None)
  Receive Date: 20070810
  Receipt Date: 20070731
  Transmission Date: 20080115
  Serious: Yes (Hospitalization)
  Sender: FDA-Public Use
  Company Number: NL-PFIZER INC-2007063956

PATIENT
  Sex: Female

DRUGS (1)
  1. SALAZOPYRINE [Suspect]
     Indication: PSORIATIC ARTHROPATHY
     Route: 048

REACTIONS (2)
  - AGRANULOCYTOSIS [None]
  - ORAL CANDIDIASIS [None]
